FAERS Safety Report 5416600-6 (Version None)
Quarter: 2007Q3

REPORT INFORMATION
  Report Type: 
  Country: None (occurrence: None)
  Receive Date: 20070816
  Receipt Date: 20070809
  Transmission Date: 20080115
  Serious: Yes (Death)
  Sender: FDA-Public Use
  Company Number: FR-AVENTIS-200712531FR

PATIENT
  Age: 76 Year
  Sex: Male

DRUGS (13)
  1. TAXOTERE [Suspect]
     Route: 042
     Dates: start: 20070628, end: 20070629
  2. CISPLATIN [Suspect]
     Route: 042
     Dates: start: 20070628, end: 20070629
  3. DURAGESIC-100 [Concomitant]
     Indication: DRUG USE FOR UNKNOWN INDICATION
  4. OGASTORO [Concomitant]
     Indication: DRUG USE FOR UNKNOWN INDICATION
  5. CIFLOX                             /00697201/ [Concomitant]
     Indication: DRUG USE FOR UNKNOWN INDICATION
  6. LYRICA [Concomitant]
     Indication: DRUG USE FOR UNKNOWN INDICATION
  7. TRANXENE [Concomitant]
     Indication: DRUG USE FOR UNKNOWN INDICATION
  8. EFFEXOR [Concomitant]
     Indication: DRUG USE FOR UNKNOWN INDICATION
  9. CLONAZEPAM [Concomitant]
     Indication: DRUG USE FOR UNKNOWN INDICATION
  10. LAROXYL [Concomitant]
     Indication: DRUG USE FOR UNKNOWN INDICATION
  11. SOLUPRED                           /00016201/ [Concomitant]
     Indication: DRUG USE FOR UNKNOWN INDICATION
  12. PARACETAMOL [Concomitant]
     Indication: DRUG USE FOR UNKNOWN INDICATION
  13. ORAMORPH SR [Concomitant]
     Indication: DRUG USE FOR UNKNOWN INDICATION

REACTIONS (1)
  - ACUTE RESPIRATORY DISTRESS SYNDROME [None]
